FAERS Safety Report 23527837 (Version 2)
Quarter: 2024Q1

REPORT INFORMATION
  Report Type: Spontaneous
  Country: US (occurrence: US)
  Receive Date: 20240215
  Receipt Date: 20240220
  Transmission Date: 20240409
  Serious: Yes (Life-Threatening, Hospitalization)
  Sender: FDA-Public Use
  Company Number: US-PFIZER INC-PV202400020761

PATIENT
  Age: 36 Year
  Sex: Male
  Weight: 12.245 kg

DRUGS (2)
  1. LORAZEPAM [Suspect]
     Active Substance: LORAZEPAM
     Indication: Catatonia
     Dosage: UNK (UNKNOWN DOSE)
  2. LORAZEPAM [Suspect]
     Active Substance: LORAZEPAM
     Dosage: UNK (INCREASED DOSE)

REACTIONS (5)
  - Therapeutic product effect incomplete [Unknown]
  - Mental status changes [Unknown]
  - Proctitis [Unknown]
  - Fall [Unknown]
  - Off label use [Unknown]
